FAERS Safety Report 9792900 (Version 1)
Quarter: 2014Q1

REPORT INFORMATION
  Report Type: Spontaneous
  Country: US (occurrence: US)
  Receive Date: 20140102
  Receipt Date: 20140102
  Transmission Date: 20141002
  Serious: No
  Sender: FDA-Public Use
  Company Number: US-SANOFI-AVENTIS-2013SA050180

PATIENT
  Age: 28 Year
  Sex: Male
  Weight: 79.38 kg

DRUGS (4)
  1. AUBAGIO [Suspect]
     Indication: MULTIPLE SCLEROSIS
     Route: 048
     Dates: start: 20130101
  2. VITAMIN D3 [Concomitant]
     Indication: MULTIPLE SCLEROSIS
  3. VITAMIN B COMPLEX [Concomitant]
     Indication: VITAMIN SUPPLEMENTATION
  4. ALLEGRA [Concomitant]
     Indication: HYPERSENSITIVITY

REACTIONS (2)
  - Sunburn [Recovered/Resolved]
  - Blister [Recovered/Resolved]
